FAERS Safety Report 8904656 (Version 1)
Quarter: 2012Q4

REPORT INFORMATION
  Report Type: 
  Country: US (occurrence: US)
  Receive Date: 20121113
  Receipt Date: 20121113
  Transmission Date: 20130627
  Serious: No
  Sender: FDA-Public Use
  Company Number: US-GLAXOSMITHKLINE-A0948479A

PATIENT
  Sex: Female

DRUGS (8)
  1. COREG [Suspect]
     Indication: HYPERTENSION
     Dosage: 40MG Per day
     Route: 048
  2. TRICOR [Concomitant]
  3. NORVASC [Concomitant]
  4. PROTONIX [Concomitant]
  5. ACCUPRIL [Concomitant]
  6. CRESTOR [Concomitant]
  7. HYDROCHLOROTHIAZIDE [Concomitant]
  8. SPIRONOLACTONE [Concomitant]

REACTIONS (3)
  - Blood pressure increased [Not Recovered/Not Resolved]
  - Headache [Not Recovered/Not Resolved]
  - Product quality issue [Unknown]
